FAERS Safety Report 23311398 (Version 1)
Quarter: 2023Q4

REPORT INFORMATION
  Report Type: Spontaneous
  Country: US (occurrence: US)
  Receive Date: 20231219
  Receipt Date: 20231219
  Transmission Date: 20240109
  Serious: Yes (Other)
  Sender: FDA-Public Use
  Company Number: US-AMGEN-USASP2023221460

PATIENT
  Age: 54 Year
  Sex: Male

DRUGS (5)
  1. CARFILZOMIB [Suspect]
     Active Substance: CARFILZOMIB
     Indication: Plasma cell myeloma
     Dosage: UNK
     Route: 065
  2. LENALIDOMIDE [Concomitant]
     Active Substance: LENALIDOMIDE
  3. DEXAMETHASONE [Concomitant]
     Active Substance: DEXAMETHASONE
  4. MELPHALAN [Concomitant]
     Active Substance: MELPHALAN
  5. POMALIDOMIDE [Concomitant]
     Active Substance: POMALIDOMIDE

REACTIONS (1)
  - Plasma cell myeloma refractory [Unknown]
